FAERS Safety Report 5365121-8 (Version None)
Quarter: 2007Q2

REPORT INFORMATION
  Report Type: 
  Country: None (occurrence: None)
  Receive Date: 20070530
  Receipt Date: 20070112
  Transmission Date: 20071010
  Serious: No
  Sender: FDA-Public Use
  Company Number: 2007PV028412

PATIENT
  Age: 55 Year
  Sex: Male

DRUGS (3)
  1. BYETTA [Suspect]
     Indication: GLUCOSE TOLERANCE IMPAIRED
     Dosage: 10 MCG;BID;SC
     Route: 058
     Dates: start: 20061201
  2. BYETTA [Suspect]
     Dosage: 5 MCG; BID; SC
     Route: 058
     Dates: start: 20061101, end: 20061201
  3. METFORMIN HCL [Concomitant]

REACTIONS (2)
  - BLOOD GLUCOSE INCREASED [None]
  - INJECTION SITE BRUISING [None]
